FAERS Safety Report 5201504-4 (Version None)
Quarter: 2007Q1

REPORT INFORMATION
  Report Type: 
  Country: None (occurrence: None)
  Receive Date: 20070104
  Receipt Date: 20061222
  Transmission Date: 20070707
  Serious: Yes (Other)
  Sender: FDA-Public Use
  Company Number: S06-IRL-05461-01

PATIENT
  Age: 58 Year
  Sex: Female

DRUGS (4)
  1. CIPRALEX (ESCITALOPRAM) [Suspect]
     Indication: DEPRESSION
     Dosage: 10 MG QD PO
     Route: 048
     Dates: start: 20060814
  2. PRAVASTATIN [Concomitant]
  3. IDEOS [Concomitant]
  4. STILNOCT (ZOLPIDEM TARTRATE) [Concomitant]

REACTIONS (1)
  - PURPURA [None]
